FAERS Safety Report 12441682 (Version 1)
Quarter: 2016Q2

REPORT INFORMATION
  Report Type: Report from Study
  Country: US (occurrence: US)
  Receive Date: 20160607
  Receipt Date: 20160607
  Transmission Date: 20160815
  Serious: Yes (Hospitalization, Other)
  Sender: FDA-Public Use
  Company Number: US-AMGEN-USASL2016071539

PATIENT
  Age: 73 Year
  Sex: Male

DRUGS (1)
  1. KYPROLIS [Suspect]
     Active Substance: CARFILZOMIB
     Indication: PRODUCT USED FOR UNKNOWN INDICATION
     Dosage: UNK
     Route: 065
     Dates: start: 20150601, end: 20160125

REACTIONS (10)
  - Cardiomyopathy [Unknown]
  - Encephalopathy [Unknown]
  - Bronchitis viral [Unknown]
  - Obesity [Unknown]
  - Hospitalisation [Unknown]
  - Chronic kidney disease [Unknown]
  - Hypertension [Unknown]
  - Mental status changes [Unknown]
  - Diabetes mellitus [Unknown]
  - Fall [Unknown]
